FAERS Safety Report 10982968 (Version 1)
Quarter: 2015Q1

REPORT INFORMATION
  Report Type: Spontaneous
  Country: US (occurrence: None)
  Receive Date: 20150302
  Receipt Date: 20150302
  Transmission Date: 20150721
  Serious: Yes (Other)
  Sender: FDA-Public Use
  Company Number: M2014-027

PATIENT
  Age: 78 Year
  Sex: Female

DRUGS (6)
  1. ASPERGILLUS FUMIGATUS. [Suspect]
     Active Substance: ASPERGILLUS FUMIGATUS
     Indication: ALLERGY TEST
     Dosage: 0.25CC/INJECTION
     Dates: start: 20140924
  2. HELMINTHOSPORIUM INTERSEMINATUM [Suspect]
     Active Substance: DENDRYPHIELLA VINOSA
     Indication: ALLERGY TEST
     Dosage: 0.25 CC/INJECTION
     Dates: start: 20140924
  3. RHIZOPUS NIGRICANS [Suspect]
     Active Substance: RHIZOPUS STOLONIFER
     Indication: ALLERGY TEST
     Dosage: 0.25CC/INJECTION
     Dates: start: 20140924
  4. FUSARIUM VASINFECTUM OXYSPORUM [Suspect]
     Active Substance: FUSARIUM OXYSPORUM VASINFECTUM
     Indication: ALLERGY TEST
     Dosage: 0.25CC/INJECTION
     Dates: start: 20140924
  5. PULLULARIA PULLULANS [Suspect]
     Active Substance: AUREOBASIDIUM PULLULANS VAR. PULLUTANS
     Indication: ALLERGY TEST
     Dosage: 0.25CC/INJECTION
     Dates: start: 20140924
  6. ALLERGENIC EXTRACT- CANDIDA. [Suspect]
     Active Substance: ALLERGENIC EXTRACT- CANDIDA
     Indication: ALLERGY TEST
     Dosage: 0.25CC/INJECTION
     Dates: start: 20140924

REACTIONS (3)
  - Injection site pain [None]
  - Erythema [None]
  - Swelling [None]

NARRATIVE: CASE EVENT DATE: 20140924
